FAERS Safety Report 12946965 (Version 2)
Quarter: 2016Q4

REPORT INFORMATION
  Report Type: Spontaneous
  Country: US (occurrence: US)
  Receive Date: 20161116
  Receipt Date: 20161205
  Transmission Date: 20170207
  Serious: No
  Sender: FDA-Public Use
  Company Number: US-GLAXOSMITHKLINE-US2016GSK167850

PATIENT
  Sex: Male
  Weight: 107.3 kg

DRUGS (3)
  1. AVODART [Suspect]
     Active Substance: DUTASTERIDE
     Indication: PROSTATIC DISORDER
     Dosage: 1 DF, QD
     Route: 048
     Dates: start: 2003, end: 2016
  2. FLOMAX [Suspect]
     Active Substance: TAMSULOSIN HYDROCHLORIDE
     Indication: PROSTATIC DISORDER
     Dosage: 1 DF, QD
     Route: 048
     Dates: start: 2003, end: 2016
  3. EFFEXOR XR [Suspect]
     Active Substance: VENLAFAXINE HYDROCHLORIDE
     Indication: PRODUCT USED FOR UNKNOWN INDICATION

REACTIONS (12)
  - Abnormal dreams [Unknown]
  - Decreased appetite [Unknown]
  - Weight decreased [Unknown]
  - Weight increased [Unknown]
  - Gynaecomastia [Unknown]
  - Erectile dysfunction [Unknown]
  - Loss of libido [Unknown]
  - Withdrawal syndrome [Unknown]
  - Increased appetite [Unknown]
  - Hypersomnia [Unknown]
  - Hyperhidrosis [Unknown]
  - Insomnia [Unknown]
